FAERS Safety Report 9499605 (Version 1)
Quarter: 2013Q3

REPORT INFORMATION
  Report Type: Spontaneous
  Country: FR (occurrence: FR)
  Receive Date: 20130905
  Receipt Date: 20130905
  Transmission Date: 20140515
  Serious: Yes (Hospitalization)
  Sender: FDA-Public Use
  Company Number: FR-009507513-1308FRA012125

PATIENT
  Age: 59 Year
  Sex: Male

DRUGS (6)
  1. TIENAM 500MG/500MG, POUDRE POUR PERFUSION [Suspect]
     Indication: ESCHERICHIA BACTERAEMIA
     Dosage: 1500 MG, Q8H
     Route: 042
     Dates: start: 20130728, end: 20130731
  2. METHOXSALEN [Suspect]
     Indication: GRAFT VERSUS HOST DISEASE
     Dosage: UNK
     Route: 042
     Dates: start: 20130801, end: 20130802
  3. CITRIC ACID [Suspect]
     Dosage: UNK
     Route: 042
     Dates: start: 20130801, end: 20130802
  4. LEDERFOLINE [Suspect]
     Dosage: UNK
     Route: 048
     Dates: start: 20130717, end: 20130807
  5. FOSCAVIR [Suspect]
     Indication: CYTOMEGALOVIRUS INFECTION
     Dosage: UNK
     Route: 042
     Dates: start: 20130717, end: 20130731
  6. CALCIPARINE [Concomitant]
     Dosage: UNK
     Route: 058
     Dates: start: 20130716

REACTIONS (1)
  - Hypercalcaemia [Recovered/Resolved]
